FAERS Safety Report 23485942 (Version 1)
Quarter: 2024Q1

REPORT INFORMATION
  Report Type: Spontaneous
  Country: DE (occurrence: DE)
  Receive Date: 20240206
  Receipt Date: 20240206
  Transmission Date: 20240410
  Serious: No
  Sender: FDA-Public Use
  Company Number: None

PATIENT
  Age: 74 Year
  Sex: Female
  Weight: 82 kg

DRUGS (1)
  1. EZETIMIBE [Suspect]
     Active Substance: EZETIMIBE
     Indication: Type IIa hyperlipidaemia
     Dosage: UNK
     Route: 048
     Dates: start: 20221216, end: 20230111

REACTIONS (3)
  - Oedema peripheral [Recovering/Resolving]
  - Myalgia [Recovering/Resolving]
  - Spinal pain [Recovering/Resolving]

NARRATIVE: CASE EVENT DATE: 20221228
